FAERS Safety Report 6751501-2 (Version None)
Quarter: 2010Q2

REPORT INFORMATION
  Report Type: 
  Country: None (occurrence: None)
  Receive Date: 20100602
  Receipt Date: 20100527
  Transmission Date: 20101027
  Serious: Yes (Hospitalization)
  Sender: FDA-Public Use
  Company Number: FR-ROCHE-691493

PATIENT
  Sex: Male
  Weight: 55 kg

DRUGS (10)
  1. PEGINTERFERON ALFA-2A [Suspect]
     Route: 058
     Dates: start: 20091125
  2. RIBAVIRIN [Suspect]
     Route: 048
     Dates: start: 20091125
  3. TRUVADA [Concomitant]
     Route: 048
     Dates: start: 20091027
  4. KALETRA [Concomitant]
     Route: 048
     Dates: start: 20040428
  5. LEXOMIL [Concomitant]
     Dosage: DOSE: 1/2 TABLET.
     Route: 048
     Dates: start: 20091125
  6. LAMALINE [Concomitant]
     Route: 048
     Dates: start: 20100216
  7. TRIDESONIT [Concomitant]
     Dosage: DOSE: 1 APPLICATION.
     Dates: start: 20080615
  8. DEXERYL [Concomitant]
     Dosage: DOSE: 1 APPLICATION.
     Dates: start: 20091125
  9. ZOLPIDEM [Concomitant]
  10. IMODIUM [Concomitant]

REACTIONS (1)
  - WEIGHT DECREASED [None]
